FAERS Safety Report 4320118-1 (Version None)
Quarter: 2004Q1

REPORT INFORMATION
  Report Type: 
  Country: None (occurrence: None)
  Receive Date: 20040317
  Receipt Date: 20040305
  Transmission Date: 20041129
  Serious: Yes (Hospitalization)
  Sender: FDA-Public Use
  Company Number: US-JNJFOC-20040303184

PATIENT
  Age: 78 Year
  Sex: Female

DRUGS (5)
  1. INFLIXIMAB (INFLIXIMAB, RECOMBINANT) LYOPHILIZED POWDER [Suspect]
     Indication: RHEUMATOID ARTHRITIS
     Dosage: INTRAVENOUS
     Route: 042
     Dates: start: 20030813
  2. PROTONIX (PANYOPRAZOLE) [Concomitant]
  3. DARVOCET-N (PROPACET) [Concomitant]
  4. DESYREL [Concomitant]
  5. ZOLOFT (SERTRALINE HYDROCHLORIDE) C [Concomitant]

REACTIONS (1)
  - DISORIENTATION [None]
